FAERS Safety Report 22161653 (Version 1)
Quarter: 2023Q1

REPORT INFORMATION
  Report Type: Spontaneous
  Country: JP (occurrence: JP)
  Receive Date: 20230331
  Receipt Date: 20230331
  Transmission Date: 20230418
  Serious: Yes (Other)
  Sender: FDA-Public Use
  Company Number: JP-MSD-2102JPN001511J

PATIENT
  Age: 66 Year
  Sex: Male
  Weight: 78 kg

DRUGS (3)
  1. JANUVIA [Suspect]
     Active Substance: SITAGLIPTIN PHOSPHATE
     Indication: Type 2 diabetes mellitus
     Dosage: 50 MILLIGRAM/DAY
     Route: 048
  2. VOGLIBOSE [Concomitant]
     Active Substance: VOGLIBOSE
     Dosage: 0.9 MILLIGRAM/DAY
     Route: 048
  3. DIAGLICO [Concomitant]
     Dosage: 3 DOSAGE FORM/DAY
     Route: 048

REACTIONS (1)
  - Acquired haemoglobinopathy [Unknown]
